FAERS Safety Report 8887245 (Version 1)
Quarter: 2012Q4

REPORT INFORMATION
  Report Type: 
  Country: BR (occurrence: BR)
  Receive Date: 20121105
  Receipt Date: 20121105
  Transmission Date: 20130627
  Serious: Yes (Death, Hospitalization)
  Sender: FDA-Public Use
  Company Number: BR-PFIZER INC-2012272521

PATIENT
  Age: 82 Year
  Sex: Female
  Weight: 60 kg

DRUGS (5)
  1. XALATAN [Suspect]
     Indication: GLAUCOMA
     Dosage: 1 drop each eye (3 ug), 1x/day
     Route: 047
     Dates: start: 20120110
  2. CRESTOR [Concomitant]
     Indication: CHOLESTEROL
     Dosage: 1 capsule once a day
     Dates: start: 2002
  3. MICARDIS [Concomitant]
     Indication: BLOOD PRESSURE
     Dosage: 1 capsule once a day
     Dates: start: 2002
  4. SELOZOK [Concomitant]
     Dosage: 1 capsule once a day
     Dates: start: 2007
  5. BUFFERIN CARDIO [Concomitant]
     Indication: ANTICOAGULANT THERAPY
     Dosage: 1 capsule, 1x/day

REACTIONS (6)
  - Haemorrhagic stroke [Fatal]
  - Septic shock [Fatal]
  - Renal failure chronic [Fatal]
  - Cardiac arrest [Fatal]
  - Pneumonia [Fatal]
  - Urinary tract infection [Unknown]
